FAERS Safety Report 13766474 (Version 1)
Quarter: 2017Q3

REPORT INFORMATION
  Report Type: Spontaneous
  Country: AR (occurrence: AR)
  Receive Date: 20170719
  Receipt Date: 20170719
  Transmission Date: 20171127
  Serious: Yes (Other)
  Sender: FDA-Public Use
  Company Number: AR-AMGEN-ARGSP2017107854

PATIENT
  Age: 41 Year
  Sex: Female

DRUGS (1)
  1. ENBREL [Suspect]
     Active Substance: ETANERCEPT
     Indication: RHEUMATOID ARTHRITIS
     Dosage: UNK
     Route: 065

REACTIONS (5)
  - Vasculitis [Recovering/Resolving]
  - Rash papular [Recovering/Resolving]
  - Pyrexia [Unknown]
  - Pneumonia [Unknown]
  - Petechiae [Recovering/Resolving]

NARRATIVE: CASE EVENT DATE: 2015
